FAERS Safety Report 9244834 (Version 1)
Quarter: 2013Q1

REPORT INFORMATION
  Report Type: Spontaneous
  Country: US (occurrence: None)
  Receive Date: 20121130
  Receipt Date: 20121130
  Transmission Date: 20140127
  Serious: Yes (Other)
  Sender: FDA-Public Use
  Company Number: US201208006775

PATIENT
  Age: 60 Year
  Sex: Female
  Weight: 125.2 kg

DRUGS (7)
  1. BYETTA [Suspect]
     Indication: TYPE 2 DIABETES MELLITUS
     Route: 058
  2. METFORMIN [Suspect]
  3. HYDROCHLOROTHIAZIDE (HYDROCHLOROTHIAZIDE) [Suspect]
  4. PREDNISONE (PREDNISONE) [Suspect]
  5. GABAPENTIN (GABAPENTIN) [Suspect]
  6. PROZAC (FLUOXETINE HYDROCHLORIDE) [Suspect]
  7. HYDROCODONE (HYDROCODONE) [Suspect]

REACTIONS (4)
  - Renal failure [None]
  - Weight decreased [None]
  - Nausea [None]
  - Headache [None]
